FAERS Safety Report 7207044-5 (Version None)
Quarter: 2011Q1

REPORT INFORMATION
  Report Type: 
  Country: None (occurrence: None)
  Receive Date: 20110103
  Receipt Date: 20101223
  Transmission Date: 20110831
  Serious: Yes (Death, Life-Threatening, Hospitalization)
  Sender: FDA-Public Use
  Company Number: B0689522A

PATIENT
  Sex: Male
  Weight: 56 kg

DRUGS (15)
  1. CHLORAMBUCIL [Suspect]
     Indication: CHRONIC LYMPHOCYTIC LEUKAEMIA
     Dosage: 20MG PER DAY
     Dates: start: 20101011
  2. BICALUTAMIDE [Concomitant]
     Dosage: 50MG PER DAY
     Route: 048
     Dates: start: 20070101, end: 20101207
  3. METAMIZOLE [Concomitant]
     Indication: BONE PAIN
     Route: 048
     Dates: start: 20101025
  4. LOPERAMIDE [Concomitant]
     Indication: DIARRHOEA
     Route: 048
     Dates: start: 20101026
  5. ACECLOFENACO [Concomitant]
     Indication: BONE PAIN
     Route: 048
  6. SIMVASTATIN [Concomitant]
     Indication: DYSLIPIDAEMIA
     Dosage: 20MG PER DAY
     Route: 065
     Dates: start: 20100611, end: 20101208
  7. METFORMIN HCL [Concomitant]
     Indication: DIABETES MELLITUS
     Dosage: 1700MG PER DAY
     Route: 048
     Dates: start: 20070101, end: 20101208
  8. DEXKETOPROFEN TROMETAMOL [Concomitant]
     Indication: MUSCULOSKELETAL PAIN
     Dosage: 50MG TWICE PER DAY
     Dates: start: 20101109, end: 20101126
  9. FUROSEMIDE [Concomitant]
     Indication: OEDEMA
     Route: 048
     Dates: start: 20101108, end: 20101207
  10. ASPIRIN [Concomitant]
     Indication: PROPHYLAXIS
     Dosage: 100MG PER DAY
     Route: 048
     Dates: start: 20100401, end: 20101107
  11. TRAMADOL [Concomitant]
     Indication: BONE PAIN
     Dates: start: 20101130
  12. ENALAPRIL [Concomitant]
     Indication: HYPERTENSION
     Dosage: 10MG PER DAY
     Route: 048
     Dates: start: 20090101, end: 20101208
  13. ONDANSETRON [Concomitant]
     Indication: PROPHYLAXIS OF NAUSEA AND VOMITING
     Route: 048
     Dates: start: 20101025, end: 20101101
  14. ULTRACET [Concomitant]
     Indication: MUSCULOSKELETAL PAIN
     Route: 048
     Dates: start: 20101030, end: 20101126
  15. ASCORBIC ACID [Concomitant]
     Indication: ASTHENIA
     Dosage: 500MG PER DAY
     Route: 048

REACTIONS (2)
  - HYPONATRAEMIA [None]
  - PNEUMONIA [None]
